FAERS Safety Report 8414247-0 (Version None)
Quarter: 2012Q2

REPORT INFORMATION
  Report Type: 
  Country: None (occurrence: None)
  Receive Date: 20120605
  Receipt Date: 20120529
  Transmission Date: 20120825
  Serious: Yes (Other)
  Sender: FDA-Public Use
  Company Number: GB-PFIZER INC-GB-WYE-G06088110

PATIENT
  Age: 32 Year
  Sex: Female

DRUGS (3)
  1. ABILIFY [Suspect]
     Dosage: 30 MG, FREQUENCY UNSPECIFIED
     Route: 065
     Dates: start: 20081201
  2. VENLAFAXINE HCL [Suspect]
     Indication: DEPRESSION
     Dosage: 150 MG, 2X/DAY
     Route: 048
  3. REBOXETINE [Suspect]
     Indication: DEPRESSION
     Dosage: 4.0 MG, 1X/DAY
     Route: 048
     Dates: end: 20091201

REACTIONS (1)
  - ABORTION SPONTANEOUS [None]
